FAERS Safety Report 18373798 (Version 3)
Quarter: 2021Q3

REPORT INFORMATION
  Report Type: Report from Study
  Country: JP (occurrence: JP)
  Receive Date: 20201012
  Receipt Date: 20210811
  Transmission Date: 20211014
  Serious: Yes (Hospitalization)
  Sender: FDA-Public Use
  Company Number: JP-JNJFOC-20201007199

PATIENT
  Age: 50 Year
  Sex: Male
  Weight: 79.8 kg

DRUGS (6)
  1. STELARA [Suspect]
     Active Substance: USTEKINUMAB
     Dosage: 45 MG
     Route: 058
     Dates: start: 20181022, end: 20181022
  2. STELARA [Suspect]
     Active Substance: USTEKINUMAB
     Dosage: 45 MG
     Route: 058
     Dates: start: 20181217, end: 20181217
  3. STELARA [Suspect]
     Active Substance: USTEKINUMAB
     Dosage: 45 MG
     Route: 058
     Dates: start: 20180813, end: 20180813
  4. MESALAZINE [Concomitant]
     Active Substance: MESALAMINE
     Indication: CROHN^S DISEASE
     Route: 048
     Dates: start: 20180618
  5. STELARA [Suspect]
     Active Substance: USTEKINUMAB
     Indication: CROHN^S DISEASE
     Dosage: 130 MG
     Route: 041
     Dates: start: 20180618, end: 20180618
  6. ZENTACORT [Concomitant]
     Active Substance: BUDESONIDE
     Indication: CROHN^S DISEASE
     Route: 048
     Dates: start: 20180605

REACTIONS (2)
  - Dural arteriovenous fistula [Recovering/Resolving]
  - Acoustic neuroma [Recovered/Resolved]

NARRATIVE: CASE EVENT DATE: 201902
